FAERS Safety Report 24324346 (Version 1)
Quarter: 2024Q3

REPORT INFORMATION
  Report Type: Spontaneous
  Country: PL (occurrence: PL)
  Receive Date: 20240916
  Receipt Date: 20240916
  Transmission Date: 20241017
  Serious: Yes (Other)
  Sender: SANOFI AVENTIS
  Company Number: PL-SA-2024SA264093

PATIENT
  Age: 32 Year
  Sex: Female

DRUGS (24)
  1. LEFLUNOMIDE [Suspect]
     Active Substance: LEFLUNOMIDE
     Indication: Cytomegalovirus infection
     Dosage: 20 MG, BID
     Route: 048
  2. LEFLUNOMIDE [Suspect]
     Active Substance: LEFLUNOMIDE
     Dosage: UNK, SUBSEQUENTLY REDUCED
     Route: 048
  3. CORTICOSTEROID NOS [Concomitant]
     Active Substance: CORTICOSTEROID NOS
     Indication: Immunosuppressant drug therapy
     Dosage: UNK
     Route: 042
     Dates: start: 201207
  4. MYCOPHENOLATE MOFETIL [Concomitant]
     Active Substance: MYCOPHENOLATE MOFETIL
     Indication: Immunosuppressant drug therapy
     Dosage: UNK
     Dates: start: 201207, end: 2012
  5. TACROLIMUS [Concomitant]
     Active Substance: TACROLIMUS
     Indication: Immunosuppressant drug therapy
     Dosage: UNK
     Dates: start: 201207
  6. TACROLIMUS [Concomitant]
     Active Substance: TACROLIMUS
     Dosage: UNK, DOSE REDUCED
  7. METHYLPREDNISOLONE [Concomitant]
     Active Substance: METHYLPREDNISOLONE
     Indication: Kidney transplant rejection
     Dosage: 500 MG
     Route: 041
     Dates: start: 201207
  8. ACYCLOVIR [Concomitant]
     Active Substance: ACYCLOVIR
     Indication: Prophylaxis
     Dosage: UNK, AT A PROPHYLACTIC DOSE
     Dates: start: 2012
  9. GANCICLOVIR [Concomitant]
     Active Substance: GANCICLOVIR
     Indication: Cytomegalovirus infection
     Dosage: UNK, EGFR-ADJUSTED DOSE
     Dates: start: 201208
  10. GANCICLOVIR [Concomitant]
     Active Substance: GANCICLOVIR
     Dosage: UNK, DOSE WAS SUBSEQUENTLY INCREASED
     Dates: start: 201208
  11. GANCICLOVIR [Concomitant]
     Active Substance: GANCICLOVIR
     Dosage: 5 MG/KG, BID
     Route: 042
     Dates: start: 201211
  12. GANCICLOVIR [Concomitant]
     Active Substance: GANCICLOVIR
     Dosage: 7.5 MG/KG, BID, INCREASED TO A SUPRAOPTIMAL LEVEL
     Route: 042
  13. GANCICLOVIR [Concomitant]
     Active Substance: GANCICLOVIR
     Dosage: 5 MG/KG, BID, REINSTITUTED
     Route: 042
  14. GANCICLOVIR [Concomitant]
     Active Substance: GANCICLOVIR
     Dosage: UNK, DOSAGE INCREASED
  15. LENOGRASTIM [Concomitant]
     Active Substance: LENOGRASTIM
     Indication: Leukopenia
     Dosage: UNK
     Dates: start: 2012
  16. VALGANCICLOVIR [Concomitant]
     Active Substance: VALGANCICLOVIR
     Indication: Cytomegalovirus infection
     Dosage: 900 MG, QD (EGFR-ADJUSTED THERAPEUTIC DOSE)
     Dates: start: 2012
  17. VALGANCICLOVIR [Concomitant]
     Active Substance: VALGANCICLOVIR
     Dosage: 900 MG, BID
  18. MYCOPHENOLATE SODIUM [Concomitant]
     Active Substance: MYCOPHENOLATE SODIUM
     Indication: Immunosuppressant drug therapy
     Dosage: UNK
     Dates: start: 2012
  19. MYCOPHENOLATE SODIUM [Concomitant]
     Active Substance: MYCOPHENOLATE SODIUM
     Dosage: 360 MG, BID, DOSAGE REDUCED
  20. INSULIN NOS [Concomitant]
     Active Substance: INSULIN NOS
     Indication: Diabetes mellitus
     Dosage: UNK
  21. SANDOGLOBULIN [Concomitant]
     Active Substance: HUMAN IMMUNOGLOBULIN G
     Dosage: 24 G
  22. PREDNISOLONE [Concomitant]
     Active Substance: PREDNISOLONE
     Dosage: UNK
     Route: 042
     Dates: start: 201207
  23. PREDNISOLONE [Concomitant]
     Active Substance: PREDNISOLONE
     Dosage: UNK
     Route: 048
     Dates: start: 2013
  24. CARBAPEN M [Concomitant]
     Indication: Urinary tract infection bacterial
     Dosage: UNK

REACTIONS (1)
  - Thrombocytopenia [Unknown]
